FAERS Safety Report 19764687 (Version 1)
Quarter: 2021Q3

REPORT INFORMATION
  Report Type: Spontaneous
  Country: GB (occurrence: GB)
  Receive Date: 20210830
  Receipt Date: 20210830
  Transmission Date: 20211014
  Serious: Yes (Hospitalization, Disabling, Other)
  Sender: FDA-Public Use
  Company Number: GB-TEVA-2021-GB-1946412

PATIENT
  Age: 66 Year
  Sex: Male
  Weight: 76 kg

DRUGS (6)
  1. ASPIRIN COATED [Concomitant]
     Active Substance: ASPIRIN
  2. LANSOPRAZOL [Concomitant]
     Active Substance: LANSOPRAZOLE
  3. TERBINAFINE HYDROCHLORIDE. [Concomitant]
     Active Substance: TERBINAFINE HYDROCHLORIDE
  4. IBUPROFEN SODIUM. [Concomitant]
     Active Substance: IBUPROFEN SODIUM
  5. PARACETAMOL [Concomitant]
     Active Substance: ACETAMINOPHEN
  6. ATORVASTATIN [Suspect]
     Active Substance: ATORVASTATIN
     Dosage: 20 MILLIGRAM DAILY;
     Route: 048
     Dates: start: 20180615, end: 20190322

REACTIONS (4)
  - Paraesthesia [Unknown]
  - Neuropathy peripheral [Recovered/Resolved with Sequelae]
  - Asthenia [Unknown]
  - Radiculitis brachial [Unknown]

NARRATIVE: CASE EVENT DATE: 20190125
